FAERS Safety Report 7530190-3 (Version None)
Quarter: 2011Q2

REPORT INFORMATION
  Report Type: 
  Country: None (occurrence: None)
  Receive Date: 20110607
  Receipt Date: 20110531
  Transmission Date: 20111010
  Serious: Yes (Other)
  Sender: FDA-Public Use
  Company Number: PHHY2011US47116

PATIENT
  Sex: Female

DRUGS (2)
  1. BUPROPION HCL [Suspect]
     Indication: MAJOR DEPRESSION
     Dosage: UNK UKN, UNK
  2. BUSPIRONE HCL [Suspect]
     Indication: MAJOR DEPRESSION
     Dosage: UNK UKN, UNK

REACTIONS (2)
  - MUSCLE TIGHTNESS [None]
  - BRUXISM [None]
